FAERS Safety Report 4415084-4 (Version None)
Quarter: 2004Q3

REPORT INFORMATION
  Report Type: 
  Country: None (occurrence: None)
  Receive Date: 20040727
  Receipt Date: 20040713
  Transmission Date: 20050211
  Serious: Yes (Hospitalization)
  Sender: FDA-Public Use
  Company Number: 2004-02275

PATIENT
  Age: 75 Year
  Sex: Male

DRUGS (1)
  1. IMMUCYST (BCG - IT (CONNAUGHT)), AVENTIS PASTEUR LTD., LOT NOT REP, NR [Suspect]
     Indication: BLADDER CANCER
     Dosage: 81 MG
     Route: 043
     Dates: start: 20040507, end: 20040528

REACTIONS (5)
  - BOVINE TUBERCULOSIS [None]
  - COUGH [None]
  - JAUNDICE [None]
  - PYREXIA [None]
  - WHITE BLOOD CELL COUNT DECREASED [None]
